FAERS Safety Report 4420497-0 (Version None)
Quarter: 2004Q3

REPORT INFORMATION
  Report Type: 
  Country: None (occurrence: None)
  Receive Date: 20040809
  Receipt Date: 20040316
  Transmission Date: 20050211
  Serious: No
  Sender: FDA-Public Use
  Company Number: US-GLAXOSMITHKLINE-A0502956A

PATIENT
  Age: 48 Year
  Sex: Female

DRUGS (3)
  1. PAXIL CR [Suspect]
     Dosage: 12.5MG PER DAY
     Route: 048
     Dates: start: 20030201, end: 20040312
  2. PREMARIN [Concomitant]
  3. MULTIVITAMIN [Concomitant]

REACTIONS (3)
  - ELECTRIC SHOCK [None]
  - INSOMNIA [None]
  - TINNITUS [None]
